FAERS Safety Report 7940154-3 (Version None)
Quarter: 2011Q4

REPORT INFORMATION
  Report Type: 
  Country: None (occurrence: None)
  Receive Date: 20111125
  Receipt Date: 20070322
  Transmission Date: 20120403
  Serious: Yes (Other)
  Sender: FDA-Public Use
  Company Number: PHHY2007MX05939

PATIENT
  Sex: Female

DRUGS (2)
  1. DIOVAN HCT [Suspect]
     Indication: HYPERTENSION
     Dosage: 1 DF, QD
     Dates: start: 20060501, end: 20070101
  2. DIOVAN HCT [Suspect]
     Dosage: 0.5 DF, QD
     Dates: start: 20070101

REACTIONS (5)
  - HYPOTENSION [None]
  - DIZZINESS [None]
  - ANXIETY [None]
  - HEADACHE [None]
  - FALL [None]
